FAERS Safety Report 17691901 (Version 1)
Quarter: 2020Q2

REPORT INFORMATION
  Report Type: Report from Study
  Country: SI (occurrence: SI)
  Receive Date: 20200422
  Receipt Date: 20200422
  Transmission Date: 20200714
  Serious: Yes (Other)
  Sender: FDA-Public Use
  Company Number: SI-BAYER-2020-063855

PATIENT
  Age: 54 Year
  Sex: Female

DRUGS (7)
  1. ASPIRIN PROTECT 100 MG [Concomitant]
     Active Substance: ASPIRIN
     Route: 048
  2. FOLKODIN ALKALOID [Concomitant]
  3. CONCOR [Concomitant]
     Active Substance: BISOPROLOL FUMARATE
  4. CHLOROQUINE. [Suspect]
     Active Substance: CHLOROQUINE
     Indication: CORONAVIRUS INFECTION
     Dosage: 250 MG EXPERIMENTAL THERAPY
     Route: 048
     Dates: start: 20200324, end: 20200324
  5. MICARDIS [Concomitant]
     Active Substance: TELMISARTAN
  6. LEKADOL C [Concomitant]
  7. SORVASTA [Concomitant]
     Active Substance: ROSUVASTATIN CALCIUM

REACTIONS (1)
  - Electrocardiogram QT prolonged [Recovered/Resolved]

NARRATIVE: CASE EVENT DATE: 20200326
